FAERS Safety Report 12792894 (Version 2)
Quarter: 2016Q4

REPORT INFORMATION
  Report Type: Spontaneous
  Country: US (occurrence: US)
  Receive Date: 20160929
  Receipt Date: 20161121
  Transmission Date: 20170207
  Serious: No
  Sender: FDA-Public Use
  Company Number: US-EMD SERONO-8108653

PATIENT
  Age: 61 Year
  Sex: Female
  Weight: 69 kg

DRUGS (2)
  1. REBIF [Suspect]
     Active Substance: INTERFERON BETA-1A
     Indication: MULTIPLE SCLEROSIS
     Route: 058
     Dates: start: 200302, end: 201110
  2. REBIF [Suspect]
     Active Substance: INTERFERON BETA-1A
     Route: 058
     Dates: start: 20130508, end: 201610

REACTIONS (1)
  - Protein urine [Recovering/Resolving]

NARRATIVE: CASE EVENT DATE: 201609
